FAERS Safety Report 18636449 (Version 1)
Quarter: 2020Q4

REPORT INFORMATION
  Report Type: Spontaneous
  Country: US (occurrence: US)
  Receive Date: 20201218
  Receipt Date: 20201218
  Transmission Date: 20210114
  Serious: No
  Sender: FDA-Public Use
  Company Number: US-GILEAD-2020-0509681

PATIENT
  Sex: Male

DRUGS (2)
  1. MULTIVITAMIN 6 [Concomitant]
     Active Substance: VITAMINS
  2. DESCOVY [Suspect]
     Active Substance: EMTRICITABINE\TENOFOVIR ALAFENAMIDE FUMARATE
     Indication: HIV INFECTION
     Dosage: TAKE 1 TABLET BY MOUTH DAILY
     Route: 065

REACTIONS (1)
  - Product dose omission issue [Unknown]
